FAERS Safety Report 7082487-1 (Version None)
Quarter: 2010Q3

REPORT INFORMATION
  Report Type: 
  Country: None (occurrence: None)
  Receive Date: 20100929
  Receipt Date: 20100609
  Transmission Date: 20110219
  Serious: No
  Sender: FDA-Public Use
  Company Number: US-WYE-H15807310

PATIENT
  Age: 37 Year
  Sex: Female
  Weight: 71.28 kg

DRUGS (6)
  1. PRISTIQ [Suspect]
     Indication: CHILLS
     Dosage: 50 MG 1X PER 1 DAY, ORAL
     Route: 048
     Dates: start: 20100501
  2. PRISTIQ [Suspect]
     Indication: HOT FLUSH
     Dosage: 50 MG 1X PER 1 DAY, ORAL
     Route: 048
     Dates: start: 20100501
  3. PRISTIQ [Suspect]
     Indication: MENOPAUSAL SYMPTOMS
     Dosage: 50 MG 1X PER 1 DAY, ORAL
     Route: 048
     Dates: start: 20100501
  4. PRISTIQ [Suspect]
     Indication: NIGHT SWEATS
     Dosage: 50 MG 1X PER 1 DAY, ORAL
     Route: 048
     Dates: start: 20100501
  5. GABAPENTIN [Concomitant]
  6. BENADRYL [Concomitant]

REACTIONS (4)
  - CONDITION AGGRAVATED [None]
  - DYSPEPSIA [None]
  - HOT FLUSH [None]
  - VAGINAL ODOUR [None]
